FAERS Safety Report 4761641-5 (Version None)
Quarter: 2005Q3

REPORT INFORMATION
  Report Type: 
  Country: None (occurrence: None)
  Receive Date: 20050826
  Receipt Date: 20041228
  Transmission Date: 20060218
  Serious: Yes (Death, Other)
  Sender: FDA-Public Use
  Company Number: USA-2004-0018200

PATIENT
  Age: 44 Year
  Sex: Male
  Weight: 86.2 kg

DRUGS (1)
  1. OXYCONTIN [Suspect]
     Indication: PAIN
     Dosage: 20 MG, AM,
     Dates: start: 20030702

REACTIONS (2)
  - DRUG ABUSER [None]
  - OVERDOSE [None]
